FAERS Safety Report 5951801-X (Version None)
Quarter: 2008Q4

REPORT INFORMATION
  Report Type: 
  Country: None (occurrence: None)
  Receive Date: 20081113
  Receipt Date: 20081110
  Transmission Date: 20090506
  Serious: Yes (Death)
  Sender: FDA-Public Use
  Company Number: A0753303A

PATIENT
  Age: 62 Year
  Sex: Female

DRUGS (4)
  1. ADVAIR DISKUS 100/50 [Suspect]
     Indication: PNEUMONIA
     Route: 055
     Dates: start: 20071218, end: 20080901
  2. COMBIVENT [Concomitant]
     Indication: PNEUMONIA
     Dates: start: 20071219, end: 20080901
  3. SINGULAIR [Concomitant]
     Indication: PNEUMONIA
     Dates: start: 20071218, end: 20080901
  4. NORVASC [Concomitant]
     Indication: PNEUMONIA
     Dates: start: 20071218, end: 20080901

REACTIONS (1)
  - ROAD TRAFFIC ACCIDENT [None]
